FAERS Safety Report 6185862-2 (Version None)
Quarter: 2009Q2

REPORT INFORMATION
  Report Type: 
  Country: None (occurrence: None)
  Receive Date: 20090511
  Receipt Date: 20090501
  Transmission Date: 20091009
  Serious: Yes (Hospitalization)
  Sender: FDA-Public Use
  Company Number: A0782970A

PATIENT
  Age: 63 Year
  Sex: Female
  Weight: 100 kg

DRUGS (11)
  1. AVANDIA [Suspect]
     Indication: DIABETES MELLITUS
     Dosage: 8MG PER DAY
     Route: 048
     Dates: start: 20030212, end: 20070401
  2. AVANDAMET [Suspect]
     Indication: DIABETES MELLITUS
     Route: 048
     Dates: start: 20030301, end: 20030901
  3. GLUCOPHAGE [Concomitant]
  4. GLUCOTROL [Concomitant]
  5. PREDNISONE [Concomitant]
  6. CELEBREX [Concomitant]
  7. LIPITOR [Concomitant]
  8. PRILOSEC [Concomitant]
  9. PREVACID [Concomitant]
  10. ALLOPURINOL [Concomitant]
  11. LAMISIL [Concomitant]

REACTIONS (4)
  - ACUTE CORONARY SYNDROME [None]
  - ACUTE MYOCARDIAL INFARCTION [None]
  - CARDIOMEGALY [None]
  - CORONARY ARTERY STENOSIS [None]
